FAERS Safety Report 4588692-8 (Version None)
Quarter: 2005Q1

REPORT INFORMATION
  Report Type: 
  Country: None (occurrence: None)
  Receive Date: 20050214
  Receipt Date: 20050214
  Transmission Date: 20050727
  Serious: Yes (Hospitalization, Other)
  Sender: FDA-Public Use
  Company Number: None

PATIENT
  Age: 92 Year
  Sex: Female
  Weight: 120 kg

DRUGS (10)
  1. WARFARIN SODIUM [Suspect]
     Indication: ATRIAL FIBRILLATION
     Dosage: PO
     Route: 048
  2. DIGOXIN [Concomitant]
  3. CARTIA XT [Concomitant]
  4. LEXAPRO [Concomitant]
  5. LASIX [Concomitant]
  6. IMODIUM A-D [Concomitant]
  7. TOPROL-XL [Concomitant]
  8. ZYPREXA [Concomitant]
  9. DITROPAN XL [Concomitant]
  10. POTASSIUM CHLORIDE [Concomitant]

REACTIONS (3)
  - COAGULOPATHY [None]
  - LOWER GASTROINTESTINAL HAEMORRHAGE [None]
  - POLYP [None]
